FAERS Safety Report 7012202-9 (Version None)
Quarter: 2010Q3

REPORT INFORMATION
  Report Type: 
  Country: None (occurrence: None)
  Receive Date: 20100924
  Receipt Date: 20100913
  Transmission Date: 20110219
  Serious: Yes (Hospitalization, Other)
  Sender: FDA-Public Use
  Company Number: GB-ELI_LILLY_AND_COMPANY-GB201009003161

PATIENT
  Age: 22 Year
  Sex: Female

DRUGS (3)
  1. ZYPADHERA [Suspect]
     Indication: SCHIZOPHRENIA
     Dosage: 300 MG, UNK
     Route: 030
  2. ZYPREXA [Suspect]
     Indication: SCHIZOPHRENIA
     Dosage: 20 MG, UNK
     Dates: start: 20090101
  3. MIRTAZAPINE [Concomitant]

REACTIONS (5)
  - AGITATION [None]
  - BLOOD PRESSURE DECREASED [None]
  - MENTAL DISORDER [None]
  - SEDATION [None]
  - TREMOR [None]
